FAERS Safety Report 6532715-3 (Version None)
Quarter: 2010Q1

REPORT INFORMATION
  Report Type: 
  Country: None (occurrence: None)
  Receive Date: 20100111
  Receipt Date: 20100104
  Transmission Date: 20100710
  Serious: Yes (Other)
  Sender: FDA-Public Use
  Company Number: US-BAYER-201010460NA

PATIENT
  Age: 25 Year
  Sex: Female

DRUGS (3)
  1. DROSPIRENONE AND EHTINYL ESTRADIOL [Suspect]
     Indication: DRUG USE FOR UNKNOWN INDICATION
     Route: 048
     Dates: start: 20060701, end: 20071001
  2. YAZ [Suspect]
     Indication: DRUG USE FOR UNKNOWN INDICATION
     Route: 048
     Dates: start: 20060701, end: 20071001
  3. YASMIN [Suspect]
     Indication: DRUG USE FOR UNKNOWN INDICATION
     Dates: start: 20060701, end: 20071001

REACTIONS (1)
  - PULMONARY EMBOLISM [None]
